FAERS Safety Report 9430650 (Version 1)
Quarter: 2013Q3

REPORT INFORMATION
  Report Type: Report from Study
  Country: US (occurrence: US)
  Receive Date: 20130730
  Receipt Date: 20130730
  Transmission Date: 20140515
  Serious: No
  Sender: FDA-Public Use
  Company Number: US-ABBOTT-13P-163-1090856-00

PATIENT
  Sex: Female
  Weight: 65.83 kg

DRUGS (5)
  1. NIASPAN (COATED) [Suspect]
     Indication: HIGH DENSITY LIPOPROTEIN DECREASED
     Dosage: 1500MG QHS
     Route: 048
  2. NIASPAN (COATED) [Suspect]
     Dosage: 1000MG  QHS
     Route: 048
  3. NIASPAN (COATED) [Suspect]
     Dosage: 500MG  QHS
     Route: 048
  4. DIOVAN [Concomitant]
     Indication: PRODUCT USED FOR UNKNOWN INDICATION
     Route: 048
  5. ASA [Concomitant]
     Indication: PRODUCT USED FOR UNKNOWN INDICATION
     Dosage: 81MG QHS
     Route: 048

REACTIONS (2)
  - Flushing [Unknown]
  - Burning sensation [Unknown]
